FAERS Safety Report 18454307 (Version 2)
Quarter: 2021Q3

REPORT INFORMATION
  Report Type: Report from Study
  Country: CA (occurrence: CA)
  Receive Date: 20201102
  Receipt Date: 20210825
  Transmission Date: 20211014
  Serious: Yes (Hospitalization)
  Sender: FDA-Public Use
  Company Number: CA-JNJFOC-20201004459

PATIENT
  Age: 25 Year
  Sex: Male
  Weight: 60 kg

DRUGS (1)
  1. STELARA [Suspect]
     Active Substance: USTEKINUMAB
     Indication: CROHN^S DISEASE
     Route: 042
     Dates: start: 20200731

REACTIONS (7)
  - Hospitalisation [Unknown]
  - Stoma site ulcer [Unknown]
  - Pain [Unknown]
  - Colectomy [Unknown]
  - Flatulence [Unknown]
  - Abdominal distension [Unknown]
  - Ileostomy [Unknown]

NARRATIVE: CASE EVENT DATE: 202010
